FAERS Safety Report 15358174 (Version 1)
Quarter: 2018Q3

REPORT INFORMATION
  Report Type: Spontaneous
  Country: US (occurrence: US)
  Receive Date: 20180906
  Receipt Date: 20180906
  Transmission Date: 20181010
  Serious: No
  Sender: FDA-Public Use
  Company Number: US-009507513-2009-189461-NL

PATIENT
  Age: 18 Year
  Sex: Female
  Weight: 87.5 kg

DRUGS (1)
  1. IMPLANON [Suspect]
     Active Substance: ETONOGESTREL
     Indication: CONTRACEPTION
     Dosage: DOSE TEXT: TRAINED PHYSICIAN, CONTINUING: NO
     Route: 059
     Dates: start: 20081208, end: 20081231

REACTIONS (3)
  - Inappropriate schedule of drug administration [Unknown]
  - Pregnancy with implant contraceptive [Recovered/Resolved]
  - Abortion spontaneous [Unknown]

NARRATIVE: CASE EVENT DATE: 20081208
